FAERS Safety Report 25529307 (Version 2)
Quarter: 2025Q3

REPORT INFORMATION
  Report Type: Report from Study
  Country: PR (occurrence: PR)
  Receive Date: 20250708
  Receipt Date: 20250710
  Transmission Date: 20251020
  Serious: Yes (Hospitalization)
  Sender: EISAI
  Company Number: PR-Eisai-EC-2025-192810

PATIENT
  Age: 71 Year
  Sex: Male
  Weight: 52.1 kg

DRUGS (19)
  1. LENVIMA [Suspect]
     Active Substance: LENVATINIB
     Indication: Renal cancer
     Dates: start: 20240724, end: 202410
  2. LENVIMA [Suspect]
     Active Substance: LENVATINIB
     Dosage: HELD FOR 2 WEEKS DUE TO COLD/FLU SYMPTOMS AND DIARRHEA
  3. LENVIMA [Suspect]
     Active Substance: LENVATINIB
     Dates: end: 202506
  4. NORVASC [Concomitant]
     Active Substance: AMLODIPINE BESYLATE
  5. AMIODARONE [Concomitant]
     Active Substance: AMIODARONE
  6. RANEXA [Concomitant]
     Active Substance: RANOLAZINE
  7. AMARYL [Concomitant]
     Active Substance: GLIMEPIRIDE
  8. SYNTHROID [Concomitant]
     Active Substance: LEVOTHYROXINE SODIUM
  9. ISOSORBIDE MONONITRATE [Concomitant]
     Active Substance: ISOSORBIDE MONONITRATE
  10. HYDRALAZINE [Concomitant]
     Active Substance: HYDRALAZINE HYDROCHLORIDE
  11. PLAVIX [Concomitant]
     Active Substance: CLOPIDOGREL BISULFATE
  12. IMODIUM [Concomitant]
     Active Substance: LOPERAMIDE HYDROCHLORIDE
  13. PRILOSEC [Concomitant]
     Active Substance: OMEPRAZOLE MAGNESIUM
  14. METOPROLOL TARTRATE [Concomitant]
     Active Substance: METOPROLOL TARTRATE
  15. CATAFLAM [Concomitant]
     Active Substance: DICLOFENAC POTASSIUM
  16. PEPCID [Concomitant]
     Active Substance: FAMOTIDINE
  17. ADVIL [Concomitant]
     Active Substance: IBUPROFEN
  18. IRON [Concomitant]
     Active Substance: IRON
  19. VITAMINS [Concomitant]
     Active Substance: VITAMINS

REACTIONS (6)
  - Fluid retention [Recovering/Resolving]
  - Oxygen saturation decreased [Recovering/Resolving]
  - Fall [Recovering/Resolving]
  - Hypertension [Recovering/Resolving]
  - Asthenia [Recovering/Resolving]
  - Dizziness [Recovering/Resolving]

NARRATIVE: CASE EVENT DATE: 20250101
